FAERS Safety Report 8416172-8 (Version None)
Quarter: 2012Q2

REPORT INFORMATION
  Report Type: 
  Country: None (occurrence: None)
  Receive Date: 20120606
  Receipt Date: 20120601
  Transmission Date: 20120825
  Serious: Yes (Other)
  Sender: FDA-Public Use
  Company Number: GB-ROCHE-1075178

PATIENT
  Sex: Female
  Weight: 72 kg

DRUGS (2)
  1. HYDROXYCHLOROQUINE SULFATE [Concomitant]
  2. MABTHERA [Suspect]
     Indication: RHEUMATOID ARTHRITIS
     Dosage: LAST DOSE PRIOR TO SAE: 05/SEP/2011
     Dates: start: 20110804

REACTIONS (2)
  - URINARY TRACT INFECTION [None]
  - HAEMATURIA [None]
